FAERS Safety Report 6061323-6 (Version None)
Quarter: 2009Q1

REPORT INFORMATION
  Report Type: 
  Country: None (occurrence: None)
  Receive Date: 20090202
  Receipt Date: 20090121
  Transmission Date: 20090719
  Serious: Yes (Hospitalization)
  Sender: FDA-Public Use
  Company Number: US-JNJFOC-20090101739

PATIENT
  Sex: Female
  Weight: 63.1 kg

DRUGS (11)
  1. INFLIXIMAB [Suspect]
     Route: 042
  2. INFLIXIMAB [Suspect]
     Route: 042
  3. INFLIXIMAB [Suspect]
     Route: 042
  4. INFLIXIMAB [Suspect]
     Route: 042
  5. INFLIXIMAB [Suspect]
     Route: 042
  6. INFLIXIMAB [Suspect]
     Route: 042
  7. INFLIXIMAB [Suspect]
     Indication: COLITIS ULCERATIVE
     Route: 042
  8. LORAZEPAM [Concomitant]
  9. YASMIN [Concomitant]
  10. OMENPRAZOLE [Concomitant]
  11. ZOLOFT [Concomitant]

REACTIONS (3)
  - COLITIS ULCERATIVE [None]
  - DEHYDRATION [None]
  - INTESTINAL STENOSIS [None]
